FAERS Safety Report 18507996 (Version 2)
Quarter: 2021Q1

REPORT INFORMATION
  Report Type: Spontaneous
  Country: JP (occurrence: JP)
  Receive Date: 20201116
  Receipt Date: 20210225
  Transmission Date: 20210419
  Serious: Yes (Hospitalization, Other)
  Sender: FDA-Public Use
  Company Number: JP-BRISTOL-MYERS SQUIBB COMPANY-BMS-2020-096379

PATIENT
  Age: 9 Decade
  Sex: Female

DRUGS (1)
  1. OPDIVO [Suspect]
     Active Substance: NIVOLUMAB
     Indication: MALIGNANT MELANOMA
     Dosage: UNK
     Route: 041

REACTIONS (6)
  - Immune-mediated myocarditis [Unknown]
  - Melaena [Unknown]
  - Physical deconditioning [Unknown]
  - Arthralgia [Unknown]
  - Immune-mediated enterocolitis [Unknown]
  - Oedema peripheral [Unknown]
